FAERS Safety Report 21531301 (Version 1)
Quarter: 2022Q4

REPORT INFORMATION
  Report Type: Spontaneous
  Country: US (occurrence: None)
  Receive Date: 20221028
  Receipt Date: 20221028
  Transmission Date: 20230112
  Serious: Yes (Hospitalization)
  Sender: FDA-Public Use
  Company Number: None

PATIENT
  Age: 50 Year
  Sex: Female

DRUGS (19)
  1. AMBRISENTAN [Suspect]
     Active Substance: AMBRISENTAN
     Indication: Pulmonary arterial hypertension
     Route: 048
     Dates: start: 20200131
  2. AUBAGIO [Concomitant]
  3. AUBAGIO [Concomitant]
     Active Substance: TERIFLUNOMIDE
  4. BUMETANIDE TAB [Concomitant]
  5. BUPROPION [Concomitant]
  6. CITALOPRAM [Concomitant]
     Active Substance: CITALOPRAM HYDROBROMIDE
  7. ATROPINE SULFATE\DIPHENOXYLATE [Concomitant]
     Active Substance: ATROPINE SULFATE\DIPHENOXYLATE
  8. FAMOTIDINE [Concomitant]
  9. GABAPENTIN [Concomitant]
     Active Substance: GABAPENTIN
  10. IMITREX [Concomitant]
  11. METOLAZONE [Concomitant]
     Active Substance: METOLAZONE
  12. POTASSIUM CHLORIDE [Concomitant]
     Active Substance: POTASSIUM CHLORIDE
  13. ROPINIROLE [Concomitant]
     Active Substance: ROPINIROLE
  14. ROPINIROLE TAB [Concomitant]
  15. SPIRONOLACTONE [Concomitant]
     Active Substance: SPIRONOLACTONE
  16. TADALAFIL [Concomitant]
     Active Substance: TADALAFIL
  17. TADALAFIL [Concomitant]
     Active Substance: TADALAFIL
  18. TOPAMAX [Concomitant]
     Active Substance: TOPIRAMATE
  19. TRESPROSTINIL [Concomitant]

REACTIONS (2)
  - Dyspnoea [None]
  - Fluid retention [None]

NARRATIVE: CASE EVENT DATE: 20221027
